FAERS Safety Report 16334353 (Version 1)
Quarter: 2019Q2

REPORT INFORMATION
  Report Type: Spontaneous
  Country: JP (occurrence: JP)
  Receive Date: 20190520
  Receipt Date: 20190520
  Transmission Date: 20190711
  Serious: Yes (Hospitalization, Disabling)
  Sender: FDA-Public Use
  Company Number: JP-ACELLA PHARMACEUTICALS, LLC-2067227

PATIENT
  Age: 75 Year
  Sex: Male

DRUGS (2)
  1. PHENYTOIN SODIUM. [Suspect]
     Active Substance: PHENYTOIN SODIUM
  2. GABAPENTIN. [Concomitant]
     Active Substance: GABAPENTIN

REACTIONS (7)
  - Ataxia [Recovering/Resolving]
  - Sensory disturbance [Recovered/Resolved]
  - Hypothyroidism [Recovered/Resolved]
  - Dysaesthesia [Recovering/Resolving]
  - Atrial fibrillation [Unknown]
  - Memory impairment [Unknown]
  - Lethargy [Unknown]
